FAERS Safety Report 6286874-0 (Version None)
Quarter: 2009Q3

REPORT INFORMATION
  Report Type: 
  Country: None (occurrence: None)
  Receive Date: 20090727
  Receipt Date: 20090727
  Transmission Date: 20100115
  Serious: Yes (Disabling)
  Sender: FDA-Public Use
  Company Number: None

PATIENT
  Age: 61 Year

DRUGS (1)
  1. ZICAM ZICAM [Suspect]
     Indication: NASOPHARYNGITIS
     Dosage: 1 EVERY 6-HR 2 TIME A DAY

REACTIONS (3)
  - AGEUSIA [None]
  - ANOSMIA [None]
  - RHINORRHOEA [None]
